FAERS Safety Report 17014787 (Version 1)
Quarter: 2019Q4

REPORT INFORMATION
  Report Type: Report from Study
  Country: US (occurrence: US)
  Receive Date: 20191111
  Receipt Date: 20191111
  Transmission Date: 20200122
  Serious: Yes (Other)
  Sender: FDA-Public Use
  Company Number: US-ROCHE-2458445

PATIENT
  Age: 50 Year
  Sex: Female
  Weight: 70.76 kg

DRUGS (2)
  1. OCREVUS [Suspect]
     Active Substance: OCRELIZUMAB
     Indication: RELAPSING MULTIPLE SCLEROSIS
     Dosage: DATE OF TREATMENT:24/OCT/2019
     Route: 042
     Dates: start: 20191010
  2. PREMARIN [Concomitant]
     Active Substance: ESTROGENS, CONJUGATED
     Route: 048

REACTIONS (1)
  - Sinusitis [Not Recovered/Not Resolved]

NARRATIVE: CASE EVENT DATE: 20191026
